FAERS Safety Report 7776798-1 (Version None)
Quarter: 2011Q3

REPORT INFORMATION
  Report Type: 
  Country: None (occurrence: None)
  Receive Date: 20110926
  Receipt Date: 20110629
  Transmission Date: 20111222
  Serious: Yes (Life-Threatening, Hospitalization, Other)
  Sender: FDA-Public Use
  Company Number: US-BAYER-2011-026622

PATIENT
  Age: 58 Year
  Sex: Female

DRUGS (9)
  1. COREG [Concomitant]
  2. INSULIN [Concomitant]
  3. BENZTROPINE MESYLATE [Concomitant]
  4. ZOCOR [Concomitant]
  5. EOVIST [Suspect]
     Indication: NUCLEAR MAGNETIC RESONANCE IMAGING ABDOMINAL
     Dosage: 10 ML, ONCE
     Dates: start: 20110325, end: 20110325
  6. DIVALPROEX SODIUM [Concomitant]
  7. METFORMIN HCL [Concomitant]
  8. MOEXIPRIL HYDROCHLORIDE [Concomitant]
  9. LEVOTHYROXINE SODIUM [Concomitant]

REACTIONS (1)
  - PULMONARY OEDEMA [None]
